FAERS Safety Report 23650763 (Version 1)
Quarter: 2024Q1

REPORT INFORMATION
  Report Type: Spontaneous
  Country: PL (occurrence: PL)
  Receive Date: 20240320
  Receipt Date: 20240320
  Transmission Date: 20240410
  Serious: Yes (Other)
  Sender: FDA-Public Use
  Company Number: PL-AMGEN-POLSP2024053166

PATIENT
  Age: 71 Year
  Sex: Male

DRUGS (9)
  1. VECTIBIX [Suspect]
     Active Substance: PANITUMUMAB
     Indication: Colorectal cancer metastatic
     Dosage: 06 MILLIGRAM/KILOGRAM, 1 HOUR INFUSION DAY 1
     Route: 065
     Dates: start: 20221107
  2. LEUCOVORIN [Suspect]
     Active Substance: LEUCOVORIN\LEUCOVORIN CALCIUM
     Indication: Colorectal cancer metastatic
     Dosage: UNK
     Route: 065
     Dates: start: 20221107
  3. FLUOROURACIL [Suspect]
     Active Substance: FLUOROURACIL
     Indication: Colorectal cancer metastatic
     Dosage: 400 MILLIGRAM/SQ. METER, DAY 1 - 2
     Route: 042
     Dates: start: 20221107
  4. FLUOROURACIL [Suspect]
     Active Substance: FLUOROURACIL
     Dosage: 400 MILLIGRAM/SQ. METER, DAY 1 - 2
     Route: 042
  5. IRINOTECAN [Suspect]
     Active Substance: IRINOTECAN
     Indication: Colorectal cancer metastatic
     Dosage: 180 MILLIGRAM/SQ. METER, DAY 1
     Route: 042
     Dates: start: 20221107
  6. LEVOLEUCOVORIN DISODIUM [Suspect]
     Active Substance: LEVOLEUCOVORIN DISODIUM
     Indication: Colorectal cancer metastatic
     Dosage: 100 MILLIGRAM/SQ. METER, 2 HOUR INFUSION DAY 1 - 2
     Route: 042
     Dates: start: 20221107
  7. FILGRASTIM [Concomitant]
     Active Substance: FILGRASTIM
     Indication: Prophylaxis
     Dosage: UNK
     Route: 065
  8. DEXAMETHASONE [Concomitant]
     Active Substance: DEXAMETHASONE
     Dosage: UNK, 2 X 4 MG) FOR 3 DAYS BEFORE SUBSEQUENT CYCLES TO MAINTAIN THE TREATMENT RHYTHM
  9. PEGFILGRASTIM [Concomitant]
     Active Substance: PEGFILGRASTIM
     Indication: Prophylaxis

REACTIONS (9)
  - Thrombocytopenia [Unknown]
  - Depilation [Unknown]
  - Dry skin [Unknown]
  - Skin exfoliation [Unknown]
  - Rash pustular [Unknown]
  - Hypomagnesaemia [Unknown]
  - Asthenia [Unknown]
  - Palmar-plantar erythrodysaesthesia syndrome [Unknown]
  - Decreased appetite [Unknown]
